FAERS Safety Report 7648143-3 (Version None)
Quarter: 2011Q3

REPORT INFORMATION
  Report Type: 
  Country: None (occurrence: None)
  Receive Date: 20110801
  Receipt Date: 20110725
  Transmission Date: 20111222
  Serious: Yes (Hospitalization, Other)
  Sender: FDA-Public Use
  Company Number: FR-PFIZER INC-2011168216

PATIENT
  Age: 23 Year
  Sex: Male

DRUGS (4)
  1. SOLU-MEDROL [Suspect]
     Dosage: 120 MG, 4X/DAY
     Route: 042
     Dates: start: 20110305, end: 20110306
  2. TETRAZEPAM [Suspect]
     Dosage: 50 MG, 1X/DAY
     Route: 048
     Dates: start: 20110227, end: 20110305
  3. ACETAMINOPHEN AND TRAMADOL HCL [Suspect]
     Dosage: 4 UNK, UNK
     Route: 048
     Dates: start: 20110227, end: 20110305
  4. VOLTAREN [Suspect]
     Dosage: 75 MG, 2X/DAY
     Route: 048
     Dates: start: 20110227, end: 20110305

REACTIONS (9)
  - SEPTIC SHOCK [None]
  - ABSCESS [None]
  - RENAL FAILURE [None]
  - INFECTION [None]
  - MUSCLE ABSCESS [None]
  - SUBCUTANEOUS ABSCESS [None]
  - PYOMYOSITIS [None]
  - SELECTIVE IGA IMMUNODEFICIENCY [None]
  - STAPHYLOCOCCAL INFECTION [None]
